FAERS Safety Report 19006728 (Version 1)
Quarter: 2021Q1

REPORT INFORMATION
  Report Type: Spontaneous
  Country: US (occurrence: US)
  Receive Date: 20210312
  Receipt Date: 20210312
  Transmission Date: 20210420
  Serious: No
  Sender: FDA-Public Use
  Company Number: None

PATIENT
  Age: 33 Year
  Sex: Female
  Weight: 51.21 kg

DRUGS (2)
  1. RIFAMPIN. [Suspect]
     Active Substance: RIFAMPIN
     Indication: LATENT TUBERCULOSIS
     Route: 048
     Dates: start: 20210203, end: 20210222
  2. MIRENA [Concomitant]
     Active Substance: LEVONORGESTREL
     Dates: start: 20190307

REACTIONS (2)
  - Lip swelling [None]
  - Rash pruritic [None]

NARRATIVE: CASE EVENT DATE: 20210222
